FAERS Safety Report 17842403 (Version 2)
Quarter: 2020Q4

REPORT INFORMATION
  Report Type: Spontaneous
  Country: US (occurrence: US)
  Receive Date: 20200529
  Receipt Date: 20201027
  Transmission Date: 20210113
  Serious: Yes (Other)
  Sender: FDA-Public Use
  Company Number: US-HRARD-202000410

PATIENT
  Age: 49 Year
  Sex: Female

DRUGS (5)
  1. METOPIRONE [Suspect]
     Active Substance: METYRAPONE
     Indication: PITUITARY-DEPENDENT CUSHING^S SYNDROME
     Dates: start: 202002
  2. PEPCID [Concomitant]
     Active Substance: FAMOTIDINE
     Indication: GASTRIC ULCER
  3. METOPIRONE [Suspect]
     Active Substance: METYRAPONE
     Indication: PITUITARY-DEPENDENT CUSHING^S SYNDROME
     Dates: start: 2020, end: 20200518
  4. METOPIRONE [Suspect]
     Active Substance: METYRAPONE
     Indication: PITUITARY-DEPENDENT CUSHING^S SYNDROME
     Dosage: 250 MG FOUR TIMES DAILY - ONGOING THERAPY
     Route: 048
     Dates: start: 202005
  5. PRILOSEC [Concomitant]
     Active Substance: OMEPRAZOLE MAGNESIUM
     Indication: GASTRIC ULCER

REACTIONS (4)
  - Gastric ulcer [Not Recovered/Not Resolved]
  - Fatigue [Not Recovered/Not Resolved]
  - Headache [Not Recovered/Not Resolved]
  - Dizziness [Not Recovered/Not Resolved]

NARRATIVE: CASE EVENT DATE: 2020
